FAERS Safety Report 17760164 (Version 1)
Quarter: 2020Q2

REPORT INFORMATION
  Report Type: Spontaneous
  Country: US (occurrence: US)
  Receive Date: 20200508
  Receipt Date: 20200508
  Transmission Date: 20200714
  Serious: No
  Sender: FDA-Public Use
  Company Number: None

PATIENT
  Age: 40 Year
  Sex: Male
  Weight: 74.25 kg

DRUGS (4)
  1. TYLENOL [Concomitant]
     Active Substance: ACETAMINOPHEN
  2. QUETIAPINE. [Suspect]
     Active Substance: QUETIAPINE
     Indication: INSOMNIA
     Dosage: ?          QUANTITY:30 TABLET(S);?
     Route: 048
  3. GABAPENTIN. [Concomitant]
     Active Substance: GABAPENTIN
  4. MEN^S DAILY [Concomitant]

REACTIONS (11)
  - Drug ineffective [None]
  - Stress [None]
  - Disorientation [None]
  - Fall [None]
  - Sensory disturbance [None]
  - Irritability [None]
  - Dysarthria [None]
  - Anger [None]
  - Euphoric mood [None]
  - Condition aggravated [None]
  - Cognitive disorder [None]

NARRATIVE: CASE EVENT DATE: 20200505
